FAERS Safety Report 24283559 (Version 3)
Quarter: 2024Q4

REPORT INFORMATION
  Report Type: Spontaneous
  Country: US (occurrence: US)
  Receive Date: 20240904
  Receipt Date: 20241129
  Transmission Date: 20250115
  Serious: Yes (Other)
  Sender: BLUEPRINT MEDICINES
  Company Number: US-Blueprint Medicines Corporation-4633

PATIENT
  Sex: Female

DRUGS (4)
  1. AYVAKIT [Suspect]
     Active Substance: AVAPRITINIB
     Indication: Systemic mastocytosis
     Route: 065
     Dates: start: 20240401
  2. AYVAKIT [Suspect]
     Active Substance: AVAPRITINIB
     Route: 065
     Dates: start: 20240401
  3. AYVAKIT [Suspect]
     Active Substance: AVAPRITINIB
     Route: 065
     Dates: start: 20180401
  4. TRAMADOL [Suspect]
     Active Substance: TRAMADOL
     Indication: Back pain
     Route: 065

REACTIONS (9)
  - Chronic kidney disease [Unknown]
  - Hepatic function abnormal [Unknown]
  - Back pain [Unknown]
  - Blood cholesterol increased [Unknown]
  - Cognitive disorder [Unknown]
  - Memory impairment [Unknown]
  - Hypertension [Unknown]
  - Somnolence [Unknown]
  - Intentional dose omission [Unknown]
